FAERS Safety Report 11934995 (Version 1)
Quarter: 2016Q1

REPORT INFORMATION
  Report Type: Spontaneous
  Country: IT (occurrence: IT)
  Receive Date: 20160121
  Receipt Date: 20160121
  Transmission Date: 20160526
  Serious: Yes (Other)
  Sender: FDA-Public Use
  Company Number: IT-FRESENIUS KABI-FK201600289

PATIENT
  Age: 74 Year
  Sex: Female
  Weight: 78 kg

DRUGS (20)
  1. AMISULPRIDE [Concomitant]
     Active Substance: AMISULPRIDE
  2. GABAPENTIN. [Concomitant]
     Active Substance: GABAPENTIN
  3. SEVOFLURANE. [Concomitant]
     Active Substance: SEVOFLURANE
  4. SIMVASTATIN. [Concomitant]
     Active Substance: SIMVASTATIN
  5. PROPOFOL (MANUFACTURER UNKNOWN) [Suspect]
     Active Substance: PROPOFOL
     Indication: GENERAL ANAESTHESIA
     Route: 065
  6. ALLOPURINOL. [Concomitant]
     Active Substance: ALLOPURINOL
  7. METHOTREXATE [Concomitant]
     Active Substance: METHOTREXATE
  8. FENTANYL. [Concomitant]
     Active Substance: FENTANYL
  9. TRAZODONE [Concomitant]
     Active Substance: TRAZODONE HYDROCHLORIDE
  10. LEVOTHYROXINE. [Concomitant]
     Active Substance: LEVOTHYROXINE
  11. VITAMIN D [Concomitant]
     Active Substance: CHOLECALCIFEROL
  12. CANRENONE [Concomitant]
     Active Substance: CANRENONE
  13. ACETAMINOPHREN [Concomitant]
  14. PREDNISON [Concomitant]
     Active Substance: PREDNISONE
  15. NITROGLYCERIN. [Concomitant]
     Active Substance: NITROGLYCERIN
  16. LANSOPRAZOLE. [Concomitant]
     Active Substance: LANSOPRAZOLE
  17. FUROSEMIDE. [Concomitant]
     Active Substance: FUROSEMIDE
  18. ROCURONIUM [Concomitant]
     Active Substance: ROCURONIUM BROMIDE
  19. PROPOFOL (MANUFACTURER UNKNOWN) [Suspect]
     Active Substance: PROPOFOL
     Route: 065
  20. SERTRALINE [Concomitant]
     Active Substance: SERTRALINE HYDROCHLORIDE

REACTIONS (1)
  - Vasoplegia syndrome [Unknown]
